FAERS Safety Report 5868051-8 (Version None)
Quarter: 2008Q3

REPORT INFORMATION
  Report Type: 
  Country: None (occurrence: None)
  Receive Date: 20080902
  Receipt Date: 20080821
  Transmission Date: 20090109
  Serious: Yes (Other)
  Sender: FDA-Public Use
  Company Number: ES-ASTRAZENECA-2008AC02293

PATIENT
  Age: 84 Year
  Sex: Female

DRUGS (1)
  1. TAMOXIFEN CITRATE [Suspect]
     Indication: BREAST CANCER

REACTIONS (2)
  - BREAST CANCER [None]
  - ENDOMETRIAL CANCER [None]
